FAERS Safety Report 8842962 (Version 1)
Quarter: 2012Q4

REPORT INFORMATION
  Report Type: 
  Country: US (occurrence: US)
  Receive Date: 20121016
  Receipt Date: 20121016
  Transmission Date: 20130627
  Serious: No
  Sender: FDA-Public Use
  Company Number: US-VERTEX PHARMACEUTICAL INC.-2012-022119

PATIENT
  Age: 51 Year
  Sex: Female
  Weight: 75 kg

DRUGS (15)
  1. VX-950 [Suspect]
     Indication: HEPATITIS C
     Dosage: 750 mg, tid
     Route: 048
  2. SPIRIVA HANDIHALER [Concomitant]
     Dosage: UNK
  3. VENTOLIN HFA [Concomitant]
  4. ADVAIR [Concomitant]
  5. ABILIFY [Concomitant]
     Dosage: 10 mg, UNK
  6. CYMBALTA [Concomitant]
     Dosage: 20 mg, UNK
  7. LASIX                              /00032601/ [Concomitant]
     Dosage: 20 mg, UNK
  8. AVAPRO [Concomitant]
     Dosage: 150 mg, UNK
  9. MOBIC [Concomitant]
     Dosage: 15 mg, UNK
  10. REQUIP [Concomitant]
     Dosage: 0.5 mg, UNK
  11. RELPAX [Concomitant]
     Dosage: 20 mg, UNK
  12. PREVACID [Concomitant]
     Dosage: 15 mg, UNK
  13. LORTAB                             /00607101/ [Concomitant]
     Dosage: UNK
  14. NEURONTIN [Concomitant]
     Dosage: 100 mg, UNK
  15. ZANAFLEX [Concomitant]
     Dosage: 2 mg, UNK

REACTIONS (3)
  - Decreased appetite [Unknown]
  - Asthenia [Unknown]
  - Fatigue [Unknown]
